FAERS Safety Report 18313158 (Version 1)
Quarter: 2020Q3

REPORT INFORMATION
  Report Type: Other
  Country: GB (occurrence: GB)
  Receive Date: 20200925
  Receipt Date: 20200925
  Transmission Date: 20201103
  Serious: No
  Sender: FDA-Public Use
  Company Number: GB-LUPIN PHARMACEUTICALS INC.-2019-06174

PATIENT
  Age: 70 Year
  Sex: Female
  Weight: 74 kg

DRUGS (17)
  1. FLUTICASONE. [Concomitant]
     Active Substance: FLUTICASONE
     Indication: ILL-DEFINED DISORDER
     Dosage: UNK UNK, BID (INHALE 2 DOSES TWICE DAILY)
     Route: 065
     Dates: start: 20090108, end: 20190703
  2. ESTRADIOL. [Concomitant]
     Active Substance: ESTRADIOL
     Indication: ILL-DEFINED DISORDER
     Dosage: UNK (ONE PESSARY TWICE WEEKLY)
     Route: 065
     Dates: start: 20040528, end: 20190703
  3. CITALOPRAM [Concomitant]
     Active Substance: CITALOPRAM HYDROBROMIDE
     Indication: ILL-DEFINED DISORDER
     Dosage: UNK UNK, QD (TAKE ONE DAILY)
     Route: 065
     Dates: start: 20040408, end: 20190703
  4. DIAZEPAM. [Concomitant]
     Active Substance: DIAZEPAM
     Indication: ILL-DEFINED DISORDER
     Dosage: UNK, AS DIRECTED
     Route: 065
     Dates: start: 20041222, end: 20190703
  5. ATORVASTATIN [Concomitant]
     Active Substance: ATORVASTATIN
     Indication: ILL-DEFINED DISORDER
     Dosage: UNK UNK, QD (TAKE ONE DAILY)
     Route: 065
     Dates: start: 20040408, end: 20190703
  6. GLYCERYL TRINITRATE [Concomitant]
     Active Substance: NITROGLYCERIN
     Indication: ILL-DEFINED DISORDER
     Dosage: UNK (ONE PUFF AS NEEDED)
     Route: 065
     Dates: start: 20080630, end: 20190703
  7. CO?DYDRAMOL [Concomitant]
     Active Substance: ACETAMINOPHEN\DIHYDROCODEINE
     Indication: ILL-DEFINED DISORDER
     Dosage: UNK (TAKE 1 OR 2 EVERY 4?6 HRS)
     Route: 065
     Dates: start: 20040408, end: 20190703
  8. ESOMEPRAZOLE. [Concomitant]
     Active Substance: ESOMEPRAZOLE MAGNESIUM
     Indication: ILL-DEFINED DISORDER
     Dosage: UNK UNK, QD (TAKE ONE DAILY)
     Route: 065
     Dates: start: 20050527, end: 20190703
  9. SIMVASTATIN. [Concomitant]
     Active Substance: SIMVASTATIN
     Indication: ILL-DEFINED DISORDER
     Dosage: UNK UNK, QD (TAKE ONE AT NIGHT)
     Route: 065
     Dates: start: 20080630, end: 20190703
  10. PEPPERMINT OIL [Concomitant]
     Active Substance: PEPPERMINT OIL
     Indication: ILL-DEFINED DISORDER
     Dosage: UNK UNK, TID (TAKE ONE 3 TIMES/DAY)
     Route: 065
     Dates: start: 20040906, end: 20190703
  11. VISCOTEARS [Concomitant]
     Active Substance: CARBOMER
     Indication: ILL-DEFINED DISORDER
     Dosage: UNK (ONE DROP AS NEEDED)
     Route: 065
     Dates: start: 20051122, end: 20190703
  12. TRAMADOL. [Concomitant]
     Active Substance: TRAMADOL
     Indication: ILL-DEFINED DISORDER
     Dosage: UNK (TAKE 1 OR 2 AS DIRECTED)
     Route: 065
     Dates: start: 20040524, end: 20190703
  13. OMEPRAZOLE. [Suspect]
     Active Substance: OMEPRAZOLE
     Indication: PRODUCT USED FOR UNKNOWN INDICATION
     Dosage: UNK (TAKE ONE DAILY)
     Route: 065
     Dates: start: 20080617, end: 20190703
  14. SALBUTAMOL [Concomitant]
     Active Substance: ALBUTEROL
     Indication: ILL-DEFINED DISORDER
     Dosage: UNK (INHALE 2 DOSES AS NEEDED)
     Route: 065
     Dates: start: 20041101, end: 20190703
  15. LANSOPRAZOLE. [Suspect]
     Active Substance: LANSOPRAZOLE
     Indication: PRODUCT USED FOR UNKNOWN INDICATION
     Dosage: UNK UNK, QD (TAKE ONE ONCE DAILY)
     Route: 065
     Dates: start: 20090113, end: 20190703
  16. SERETIDE [Concomitant]
     Active Substance: FLUTICASONE PROPIONATE\SALMETEROL XINAFOATE
     Indication: ILL-DEFINED DISORDER
     Dosage: UNK UNK, BID (INHALE 2 DOSES TWICE DAILY)
     Route: 065
     Dates: start: 20041210, end: 20190703
  17. PROPRANOLOL [Concomitant]
     Active Substance: PROPRANOLOL HYDROCHLORIDE
     Indication: ILL-DEFINED DISORDER
     Dosage: UNK UNK, TID (TAKE ONE 3 TIMES/DAY)
     Route: 065
     Dates: start: 20040408, end: 20190703

REACTIONS (1)
  - Drug intolerance [Unknown]

NARRATIVE: CASE EVENT DATE: 20090205
